FAERS Safety Report 25150830 (Version 2)
Quarter: 2025Q2

REPORT INFORMATION
  Report Type: Spontaneous
  Country: US (occurrence: US)
  Receive Date: 20250402
  Receipt Date: 20250510
  Transmission Date: 20250716
  Serious: No
  Sender: SANOFI AVENTIS
  Company Number: US-SA-2025SA093298

PATIENT
  Age: 71 Year
  Sex: Female
  Weight: 61.36 kg

DRUGS (4)
  1. DUPIXENT [Suspect]
     Active Substance: DUPILUMAB
     Indication: Dermatitis atopic
     Route: 058
  2. DUPIXENT [Suspect]
     Active Substance: DUPILUMAB
     Dosage: 300 MG, QOW
     Route: 058
  3. PRAVASTATIN SODIUM [Concomitant]
     Active Substance: PRAVASTATIN SODIUM
  4. LOVASTATIN [Concomitant]
     Active Substance: LOVASTATIN

REACTIONS (3)
  - Injection site swelling [Unknown]
  - Wrong technique in device usage process [Unknown]
  - Pruritus [Unknown]

NARRATIVE: CASE EVENT DATE: 20250421
